FAERS Safety Report 13842605 (Version 1)
Quarter: 2017Q3

REPORT INFORMATION
  Report Type: Report from Study
  Country: FR (occurrence: FR)
  Receive Date: 20170808
  Receipt Date: 20170808
  Transmission Date: 20171127
  Serious: Yes (Life-Threatening)
  Sender: FDA-Public Use
  Company Number: FR-BION-006538

PATIENT
  Age: 55 Year
  Sex: Female

DRUGS (1)
  1. VALPROIC ACID. [Suspect]
     Active Substance: VALPROIC ACID
     Indication: PRODUCT USED FOR UNKNOWN INDICATION
     Dosage: INITIALLY RECEIVED 600 MG OF VALPROMIDE DAILY FOR 4 MONTHS AND REPLACED BY VALPROATE 500 MG DAILY

REACTIONS (2)
  - Coma [Recovering/Resolving]
  - Hyperammonaemic encephalopathy [Recovering/Resolving]
